FAERS Safety Report 4463540-5 (Version None)
Quarter: 2004Q3

REPORT INFORMATION
  Report Type: 
  Country: None (occurrence: None)
  Receive Date: 20040928
  Receipt Date: 20040920
  Transmission Date: 20050211
  Serious: Yes (Hospitalization)
  Sender: FDA-Public Use
  Company Number: 2004CG01863

PATIENT
  Age: 67 Year
  Sex: Female
  Weight: 71 kg

DRUGS (4)
  1. NEXIUM [Suspect]
     Dosage: 1 DF QD PO
     Route: 048
     Dates: start: 20030615, end: 20040630
  2. VASTAREL ^BIOPHARMA^ [Suspect]
     Dosage: 35 MG BID PO
     Route: 048
     Dates: start: 20030615, end: 20040630
  3. DOLIPRANE [Suspect]
     Dosage: 1 DF BID PO
     Route: 048
     Dates: start: 20030615, end: 20040630
  4. ELAVIL [Suspect]
     Dosage: 25 MG QD PO
     Route: 048
     Dates: start: 20030615, end: 20040630

REACTIONS (9)
  - CHEST PAIN [None]
  - CHILLS [None]
  - CYTOMEGALOVIRUS INFECTION [None]
  - DIARRHOEA [None]
  - DRUG TOXICITY [None]
  - EPSTEIN-BARR VIRUS INFECTION [None]
  - HYPERTHERMIA [None]
  - NEUTROPENIA [None]
  - WHITE BLOOD CELL COUNT DECREASED [None]
